FAERS Safety Report 23703709 (Version 1)
Quarter: 2024Q2

REPORT INFORMATION
  Report Type: Spontaneous
  Country: US (occurrence: US)
  Receive Date: 20240403
  Receipt Date: 20240403
  Transmission Date: 20240716
  Serious: No
  Sender: FDA-Public Use
  Company Number: US-PURDUE PHARMA-USA-2024-0308768

PATIENT

DRUGS (1)
  1. OXYCODONE HYDROCHLORIDE [Suspect]
     Active Substance: OXYCODONE HYDROCHLORIDE
     Indication: Pain
     Dosage: 20 MG
     Route: 048

REACTIONS (7)
  - Nausea [Unknown]
  - Dizziness [Unknown]
  - Pruritus [Unknown]
  - Abdominal pain upper [Unknown]
  - Drug ineffective [Unknown]
  - Product formulation issue [Unknown]
  - Product substitution issue [Unknown]
